FAERS Safety Report 15558805 (Version 1)
Quarter: 2018Q4

REPORT INFORMATION
  Report Type: Report from Study
  Country: US (occurrence: US)
  Receive Date: 20181029
  Receipt Date: 20181029
  Transmission Date: 20190205
  Serious: Yes (Hospitalization, Other)
  Sender: FDA-Public Use
  Company Number: US-ALEXION PHARMACEUTICALS INC.-A201814042

PATIENT
  Age: 51 Year
  Sex: Female

DRUGS (2)
  1. SOLIRIS [Suspect]
     Active Substance: ECULIZUMAB
     Dosage: 600 MG, Q2W
     Route: 042
     Dates: start: 20140204
  2. SOLIRIS [Suspect]
     Active Substance: ECULIZUMAB
     Indication: ATYPICAL HAEMOLYTIC URAEMIC SYNDROME
     Dosage: UNK
     Route: 065

REACTIONS (8)
  - Loss of consciousness [Unknown]
  - Pancreatitis [Unknown]
  - Hypertension [Unknown]
  - Skin laceration [Unknown]
  - Dyspnoea [Unknown]
  - Pulmonary embolism [Unknown]
  - Incorrect dose administered [Unknown]
  - Head injury [Unknown]

NARRATIVE: CASE EVENT DATE: 20140204
